FAERS Safety Report 23706234 (Version 1)
Quarter: 2024Q2

REPORT INFORMATION
  Report Type: Spontaneous
  Country: US (occurrence: None)
  Receive Date: 20240403
  Receipt Date: 20240403
  Transmission Date: 20240716
  Serious: Yes (Life-Threatening, Hospitalization)
  Sender: FDA-Public Use
  Company Number: None

PATIENT
  Age: 44 Year
  Sex: Female
  Weight: 87.75 kg

DRUGS (17)
  1. XEMBIFY [Suspect]
     Active Substance: HUMAN IMMUNOGLOBULIN G
     Dosage: WEEKLY?
     Route: 058
     Dates: start: 20231229, end: 20240112
  2. DEVICE [Suspect]
     Active Substance: DEVICE
  3. DEVICE [Concomitant]
     Active Substance: DEVICE
  4. Atorvasttin [Concomitant]
  5. Colanor [Concomitant]
  6. ENTRESTO [Concomitant]
  7. ESCITALOPRAM [Concomitant]
  8. Farxiga/ Dapagliflozin [Concomitant]
  9. LEVOTHYROXINE [Concomitant]
  10. METFORMIN [Concomitant]
  11. METOPROLOL SUCCINATE [Concomitant]
     Active Substance: METOPROLOL SUCCINATE
  12. Pantorazole [Concomitant]
  13. Stilolto [Concomitant]
  14. OLODATEROL [Concomitant]
  15. TOPIRAMATE [Concomitant]
     Active Substance: TOPIRAMATE
  16. WARFARIN [Concomitant]
  17. Multivitamin [Concomitant]

REACTIONS (2)
  - Prosthetic cardiac valve thrombosis [None]
  - Brief resolved unexplained event [None]

NARRATIVE: CASE EVENT DATE: 20240115
